FAERS Safety Report 9631855 (Version 1)
Quarter: 2013Q4

REPORT INFORMATION
  Report Type: Spontaneous
  Country: US (occurrence: None)
  Receive Date: 20131017
  Receipt Date: 20131017
  Transmission Date: 20140711
  Serious: Yes (Other)
  Sender: FDA-Public Use
  Company Number: None

PATIENT
  Age: 3 Year
  Sex: Female
  Weight: 19.05 kg

DRUGS (2)
  1. SINGULAIR [Suspect]
     Indication: ASTHMA
     Dates: start: 20130927, end: 20131016
  2. SINGULAIR [Suspect]
     Indication: COUGH
     Dates: start: 20130927, end: 20131016

REACTIONS (3)
  - Insomnia [None]
  - Panic attack [None]
  - Hyperventilation [None]
